FAERS Safety Report 8936233 (Version 1)
Quarter: 2012Q4

REPORT INFORMATION
  Report Type: 
  Country: US (occurrence: US)
  Receive Date: 20121130
  Receipt Date: 20121130
  Transmission Date: 20130627
  Serious: No
  Sender: FDA-Public Use
  Company Number: US-ABBOTT-12P-163-0976046-00

PATIENT
  Age: 38 Year
  Sex: Male

DRUGS (2)
  1. ANDROGEL [Suspect]
     Indication: PRODUCT USED FOR UNKNOWN INDICATION
     Dosage: 2 pumps
     Route: 061
     Dates: start: 201206, end: 20120828
  2. ANDROGEL [Suspect]
     Dosage: 4 pumps
     Route: 061
     Dates: start: 20120829

REACTIONS (1)
  - Blood testosterone decreased [Not Recovered/Not Resolved]
